FAERS Safety Report 15216501 (Version 1)
Quarter: 2018Q3

REPORT INFORMATION
  Report Type: Spontaneous
  Country: US (occurrence: US)
  Receive Date: 20180730
  Receipt Date: 20180730
  Transmission Date: 20181010
  Serious: No
  Sender: FDA-Public Use
  Company Number: US-GALDERMA-US18024777

PATIENT
  Age: 34 Year

DRUGS (8)
  1. PROACTIV MOISTURE REPAIR [Concomitant]
     Active Substance: COSMETICS
     Route: 061
     Dates: start: 20170628, end: 20170703
  2. PROACTIV MD DEEP CLEANSING FACE WASH [Concomitant]
     Active Substance: COSMETICS
     Route: 061
     Dates: start: 20170628, end: 20170703
  3. PROACTIV EYE BRIGHTENING SERUM [Concomitant]
     Active Substance: COSMETICS
     Route: 061
     Dates: start: 20170628, end: 20170703
  4. MULTIVITAMINS [Concomitant]
     Active Substance: VITAMINS
  5. PROACTIV MD BALANCING TONER [Concomitant]
     Active Substance: COSMETICS
     Route: 061
     Dates: start: 20170628, end: 20170703
  6. PROACTIV MD DAILY OIL CONTROL SPF 30 [Suspect]
     Active Substance: AVOBENZONE\OCTISALATE\OCTOCRYLENE
     Indication: PRODUCT USED FOR UNKNOWN INDICATION
     Route: 061
     Dates: start: 20170628, end: 20170703
  7. BIRTH CONTROL [Concomitant]
     Active Substance: UNSPECIFIED INGREDIENT
  8. PROACTIV MD ADAPALENE ACNE TREATMENT [Suspect]
     Active Substance: ADAPALENE
     Indication: PRODUCT USED FOR UNKNOWN INDICATION
     Dosage: 0.1%
     Route: 061
     Dates: start: 20170628, end: 20170703

REACTIONS (2)
  - Erythema [Recovered/Resolved]
  - Chemical burn [Recovered/Resolved]

NARRATIVE: CASE EVENT DATE: 20170701
